FAERS Safety Report 19662872 (Version 7)
Quarter: 2025Q2

REPORT INFORMATION
  Report Type: Report from Study
  Country: US (occurrence: US)
  Receive Date: 20210805
  Receipt Date: 20250403
  Transmission Date: 20250716
  Serious: Yes (Hospitalization, Other)
  Sender: KYOWA
  Company Number: US-KYOWAKIRIN-2020BKK017947

PATIENT

DRUGS (9)
  1. BUROSUMAB [Suspect]
     Active Substance: BUROSUMAB
     Indication: Hereditary hypophosphataemic rickets
     Dosage: 10 MG, 1 IN 2 WK
     Route: 065
  2. BUROSUMAB [Suspect]
     Active Substance: BUROSUMAB
     Dosage: 1.0 MG/KG (90.0 MG) - 2 INJECTIONS, ONCE IN FOUR WEEKS (90 MG,1 IN 4 WK)
     Route: 065
     Dates: start: 20190307
  3. BUROSUMAB [Suspect]
     Active Substance: BUROSUMAB
     Dosage: 1.0 MG/KG (90.0 MG, 1 IN 1 M)
     Route: 058
     Dates: start: 20191001
  4. BUROSUMAB [Suspect]
     Active Substance: BUROSUMAB
     Dosage: 1.0 MG/KG (90.0 MG) - 2 INJECTIONS, ONCE IN FOUR WEEKS (90 MG,1 IN 4 WK)
     Route: 058
     Dates: start: 20191023
  5. BUROSUMAB [Suspect]
     Active Substance: BUROSUMAB
     Dosage: 1.0 MG/KG (90.0 MG) - 2 INJECTIONS, ONCE IN FOUR WEEKS (90 MG,1 IN 4 WK)
     Route: 058
     Dates: start: 20200727
  6. BUROSUMAB [Suspect]
     Active Substance: BUROSUMAB
     Dosage: 40-50 MG (1 IN 2 WK)
     Route: 058
     Dates: start: 20200920, end: 20200920
  7. BUROSUMAB [Suspect]
     Active Substance: BUROSUMAB
     Dosage: 1.0 MG/KG (90.0 MG) - 2 INJECTIONS, ONCE IN FOUR WEEKS (90 MG,1 IN 4 WK)
     Route: 065
     Dates: start: 20210408
  8. METOPROLOL [Concomitant]
     Active Substance: METOPROLOL
     Indication: Hypertension
     Dosage: 100 MG (50 MG, 2 IN 1 D)
     Route: 048
     Dates: start: 20171025
  9. LOSARTAN [Concomitant]
     Active Substance: LOSARTAN
     Indication: Hypertension
     Dosage: 50 MG (50 MG, 1 IN 1 D)
     Route: 048
     Dates: start: 20190404

REACTIONS (3)
  - Respiratory tract infection [Recovered/Resolved]
  - Gastroenteritis salmonella [Recovered/Resolved]
  - Maternal exposure during pregnancy [Recovered/Resolved]

NARRATIVE: CASE EVENT DATE: 20200701
